FAERS Safety Report 18761471 (Version 1)
Quarter: 2021Q1

REPORT INFORMATION
  Report Type: Spontaneous
  Country: US (occurrence: US)
  Receive Date: 20210116
  Receipt Date: 20210116
  Transmission Date: 20210419
  Serious: No
  Sender: FDA-Public Use
  Company Number: None

PATIENT
  Age: 58 Year
  Sex: Male
  Weight: 62 kg

DRUGS (1)
  1. CEMIPLIMAB?RWLC (CEMIPLIMAB?RWLC 50MG/ML INJ, VIL, 7ML) [Suspect]
     Active Substance: CEMIPLIMAB-RWLC
     Indication: SMALL CELL CARCINOMA
     Dosage: ?          OTHER FREQUENCY:OTHER;?
     Route: 042
     Dates: start: 20200511

REACTIONS (1)
  - Rash [None]

NARRATIVE: CASE EVENT DATE: 20200805
